FAERS Safety Report 9881579 (Version 1)
Quarter: 2014Q1

REPORT INFORMATION
  Report Type: Report from Study
  Country: NL (occurrence: NL)
  Receive Date: 20140207
  Receipt Date: 20140207
  Transmission Date: 20141002
  Serious: Yes (Death)
  Sender: FDA-Public Use
  Company Number: PHHY2014NL014878

PATIENT
  Sex: Male

DRUGS (3)
  1. ACLASTA [Suspect]
     Indication: CHRONIC OBSTRUCTIVE PULMONARY DISEASE
     Dosage: 5 MG, 1 PER 52 WEEKS
     Route: 042
     Dates: start: 20110117
  2. ACLASTA [Suspect]
     Dosage: 5 MG, 1 PER 52 WEEKS
     Route: 042
     Dates: start: 20120215
  3. ACLASTA [Suspect]
     Dosage: 5 MG, 1 PER 52 WEEKS
     Route: 042
     Dates: start: 20130211

REACTIONS (1)
  - Chronic obstructive pulmonary disease [Fatal]
